FAERS Safety Report 16212917 (Version 1)
Quarter: 2019Q2

REPORT INFORMATION
  Report Type: Spontaneous
  Country: US (occurrence: US)
  Receive Date: 20190418
  Receipt Date: 20190418
  Transmission Date: 20190711
  Serious: Yes (Other)
  Sender: FDA-Public Use
  Company Number: US-MYLANLABS-2019M1036919

PATIENT
  Age: 64 Year
  Sex: Male

DRUGS (2)
  1. HYDROMORPHONE [Suspect]
     Active Substance: HYDROMORPHONE
     Indication: CANCER PAIN
     Dosage: INTRATHECAL DRUG DELIVERY SYSTEM CONTAINING HYDROMORPHINE 1 MG/ML ALONG WITH BUPIVACAINE AT AN IN...
     Route: 037
  2. BUPIVACAINE. [Suspect]
     Active Substance: BUPIVACAINE
     Indication: CANCER PAIN
     Dosage: INTRATHECAL DRUG DELIVERY SYSTEM CONTAINING BUPIVACAINE 10 MG/ML ALONG WITH HYDROMORPHINE AT AN I...
     Route: 037

REACTIONS (1)
  - Symptom masked [Unknown]
